FAERS Safety Report 19483505 (Version 1)
Quarter: 2021Q3

REPORT INFORMATION
  Report Type: Spontaneous
  Country: CN (occurrence: CN)
  Receive Date: 20210701
  Receipt Date: 20210701
  Transmission Date: 20211014
  Serious: Yes (Other)
  Sender: FDA-Public Use
  Company Number: CN-PFIZER INC-2021738951

PATIENT
  Age: 68 Year
  Sex: Female
  Weight: 60 kg

DRUGS (6)
  1. ZYVOX [Concomitant]
     Active Substance: LINEZOLID
     Indication: ANTIINFLAMMATORY THERAPY
     Dosage: 300 ML, 1X/DAY
     Route: 041
     Dates: start: 20210602, end: 20210610
  2. IREMOD [Concomitant]
     Indication: RHEUMATOID ARTHRITIS
     Dosage: UNK
  3. TAZOCIN [Suspect]
     Active Substance: PIPERACILLIN SODIUM\TAZOBACTAM SODIUM
     Indication: ANTIINFLAMMATORY THERAPY
  4. FEN LE [HYDROXYCHLOROQUINE SULFATE] [Concomitant]
     Active Substance: HYDROXYCHLOROQUINE SULFATE
     Indication: RHEUMATOID ARTHRITIS
     Dosage: UNK
  5. TAZOCIN [Suspect]
     Active Substance: PIPERACILLIN SODIUM\TAZOBACTAM SODIUM
     Indication: PNEUMONIA
     Dosage: 4.5 G, 3X/DAY (EVERY 8 HOURS)
     Route: 041
     Dates: start: 20210602, end: 20210610
  6. LYRICA [Concomitant]
     Active Substance: PREGABALIN
     Indication: RHEUMATOID ARTHRITIS
     Dosage: UNK

REACTIONS (2)
  - Myalgia [Recovering/Resolving]
  - Rheumatoid arthritis [Recovering/Resolving]

NARRATIVE: CASE EVENT DATE: 20210609
